FAERS Safety Report 7922851-9 (Version None)
Quarter: 2011Q4

REPORT INFORMATION
  Report Type: 
  Country: None (occurrence: None)
  Receive Date: 20111117
  Receipt Date: 20111107
  Transmission Date: 20120403
  Serious: Yes (Hospitalization)
  Sender: FDA-Public Use
  Company Number: US-BAYER-2011-012010

PATIENT
  Age: 17 Year
  Sex: Female
  Weight: 99.773 kg

DRUGS (13)
  1. IBUPROFEN (ADVIL) [Concomitant]
  2. YAZ [Suspect]
     Indication: PREMENSTRUAL SYNDROME
     Dosage: UNK
     Route: 048
     Dates: start: 20061001, end: 20090801
  3. LITHIUM CARBONATE [Concomitant]
     Dosage: UNK
     Dates: start: 20071201, end: 20090901
  4. YAZ [Suspect]
  5. CIPRO [Concomitant]
     Dosage: UNK
     Dates: start: 20090804, end: 20090814
  6. TRAZODONE HCL [Concomitant]
     Dosage: UNK
     Dates: start: 20090301, end: 20090901
  7. ABILIFY [Concomitant]
     Dosage: UNK
     Dates: start: 20090201, end: 20090901
  8. YAZ [Suspect]
     Indication: MENSTRUAL CYCLE MANAGEMENT
  9. YASMIN [Suspect]
     Indication: PREMENSTRUAL SYNDROME
     Dosage: UNK
     Route: 048
     Dates: start: 20051101, end: 20061001
  10. YASMIN [Suspect]
     Indication: MENSTRUAL CYCLE MANAGEMENT
  11. OGESTREL 0.5/50-21 [Concomitant]
     Dosage: UNK
     Dates: start: 20090801
  12. LORATADINE [Concomitant]
     Dosage: UNK
     Dates: start: 20081001
  13. YASMIN [Suspect]

REACTIONS (3)
  - CHOLECYSTITIS [None]
  - GALLBLADDER DISORDER [None]
  - ABDOMINAL PAIN UPPER [None]
